FAERS Safety Report 5114557-9 (Version None)
Quarter: 2006Q3

REPORT INFORMATION
  Report Type: 
  Country: None (occurrence: None)
  Receive Date: 20060926
  Receipt Date: 20060918
  Transmission Date: 20061208
  Serious: Yes (Death, Other)
  Sender: FDA-Public Use
  Company Number: PHBS2006FI14328

PATIENT
  Age: 81 Year
  Sex: Female

DRUGS (3)
  1. ZOMETA [Suspect]
     Indication: OSTEOPOROSIS
     Route: 065
  2. MEDROL [Concomitant]
     Route: 065
  3. ATROVENT [Concomitant]
     Route: 065

REACTIONS (6)
  - CARDIAC FAILURE [None]
  - HYPERBARIC OXYGEN THERAPY [None]
  - OSTEONECROSIS [None]
  - TOOTH EXTRACTION [None]
  - WOUND CLOSURE [None]
  - WOUND DEBRIDEMENT [None]
